FAERS Safety Report 16972111 (Version 1)
Quarter: 2019Q4

REPORT INFORMATION
  Report Type: Spontaneous
  Country: FR (occurrence: FR)
  Receive Date: 20191029
  Receipt Date: 20191029
  Transmission Date: 20200122
  Serious: Yes (Hospitalization)
  Sender: FDA-Public Use
  Company Number: FR-009507513-1910FRA013352

PATIENT
  Age: 52 Year
  Sex: Female
  Weight: 56 kg

DRUGS (1)
  1. TEMODAL [Suspect]
     Active Substance: TEMOZOLOMIDE
     Indication: GLIOBLASTOMA
     Dosage: 15 MILLIGRAM, QD
     Route: 048
     Dates: start: 20190822

REACTIONS (2)
  - Rectal haemorrhage [Recovered/Resolved]
  - Colitis [Recovering/Resolving]

NARRATIVE: CASE EVENT DATE: 20190901
